FAERS Safety Report 10062017 (Version 1)
Quarter: 2014Q1

REPORT INFORMATION
  Report Type: Spontaneous
  Country: US (occurrence: None)
  Receive Date: 20140305
  Receipt Date: 20140305
  Transmission Date: 20141002
  Serious: Yes (Hospitalization)
  Sender: FDA-Public Use
  Company Number: 2013GMK008023

PATIENT
  Age: 76 Year
  Sex: Female

DRUGS (2)
  1. VERAPAMIL [Suspect]
     Indication: HYPERTENSION
     Dosage: 1 DF, AM, ORAL
     Route: 048
     Dates: start: 201308, end: 20131208
  2. WARFARIN (WARFARIN) [Concomitant]

REACTIONS (5)
  - Cardiac failure congestive [None]
  - Flushing [None]
  - Heart rate decreased [None]
  - Wheezing [None]
  - Dyspnoea [None]
